FAERS Safety Report 9235615 (Version 1)
Quarter: 2013Q2

REPORT INFORMATION
  Report Type: Spontaneous
  Country: US (occurrence: US)
  Receive Date: 20130417
  Receipt Date: 20130417
  Transmission Date: 20140414
  Serious: Yes (Other)
  Sender: FDA-Public Use
  Company Number: US-ELI_LILLY_AND_COMPANY-US201304003080

PATIENT
  Sex: Male

DRUGS (1)
  1. FORTEO [Suspect]
     Indication: OSTEOPOROSIS
     Dosage: UNK, QD

REACTIONS (4)
  - Bladder mass [Unknown]
  - Liver disorder [Unknown]
  - Renal impairment [Unknown]
  - Blood urine present [Unknown]
